FAERS Safety Report 23537363 (Version 1)
Quarter: 2024Q1

REPORT INFORMATION
  Report Type: Report from Study
  Country: US (occurrence: US)
  Receive Date: 20240219
  Receipt Date: 20240219
  Transmission Date: 20240410
  Serious: No
  Sender: FDA-Public Use
  Company Number: US-AURINIA PHARMACEUTICALS INC.-AUR-004772

PATIENT
  Sex: Female

DRUGS (2)
  1. LUPKYNIS [Suspect]
     Active Substance: VOCLOSPORIN
     Indication: Lupus nephritis
     Dosage: 23.7 MILLIGRAM, QD AM AND 15.8 MILLIGRAM, QD PM
     Route: 048
     Dates: start: 20221006
  2. ENTRESTO [Suspect]
     Active Substance: SACUBITRIL\VALSARTAN
     Indication: Product used for unknown indication
     Dosage: UNK

REACTIONS (4)
  - Urine protein/creatinine ratio increased [Unknown]
  - Serology abnormal [Unknown]
  - Blood creatinine abnormal [Recovering/Resolving]
  - Treatment noncompliance [Unknown]
